FAERS Safety Report 13542352 (Version 1)
Quarter: 2017Q2

REPORT INFORMATION
  Report Type: Spontaneous
  Country: US (occurrence: US)
  Receive Date: 20170512
  Receipt Date: 20170512
  Transmission Date: 20170830
  Serious: Yes (Other)
  Sender: FDA-Public Use
  Company Number: US-ROCHE-694155

PATIENT
  Age: 42 Year
  Sex: Female
  Weight: 86.2 kg

DRUGS (3)
  1. CCNU [Suspect]
     Active Substance: LOMUSTINE
     Indication: GLIOBLASTOMA MULTIFORME
     Dosage: THERAPY WITH CCNU WAS HELD
     Route: 048
     Dates: start: 20091202, end: 20100113
  2. AVASTIN [Suspect]
     Active Substance: BEVACIZUMAB
     Indication: GLIOBLASTOMA MULTIFORME
     Dosage: THERAPY HAS BEEN HELD, FREQUENCY 1 PER 2 WEEK IF ITS ADEQUATE.
     Route: 042
  3. VP-16 [Concomitant]
     Active Substance: ETOPOSIDE
     Route: 065
     Dates: start: 200906, end: 200912

REACTIONS (1)
  - Platelet count decreased [Recovering/Resolving]

NARRATIVE: CASE EVENT DATE: 20100204
